FAERS Safety Report 19700260 (Version 9)
Quarter: 2022Q1

REPORT INFORMATION
  Report Type: Report from Study
  Country: CN (occurrence: None)
  Receive Date: 20210813
  Receipt Date: 20220321
  Transmission Date: 20220423
  Serious: Yes (Death, Hospitalization)
  Sender: FDA-Public Use
  Company Number: CN-ROCHE-2873838

PATIENT
  Age: 70 Year
  Sex: Male
  Weight: 47 kg

DRUGS (16)
  1. CABOZANTINIB [Suspect]
     Active Substance: CABOZANTINIB
     Indication: Hepatocellular carcinoma
     Dosage: MOST RECENT DOSE TO 19/JUL/2021.
     Route: 048
     Dates: start: 20210623
  2. ATEZOLIZUMAB [Suspect]
     Active Substance: ATEZOLIZUMAB
     Indication: Hepatocellular carcinoma
     Route: 042
     Dates: start: 20210623
  3. COMPOUND ALUMINIUM HYDROXIDE [Concomitant]
  4. OMEPRAZOLE [Concomitant]
     Active Substance: OMEPRAZOLE
  5. PARACETAMOL;TRAMADOL HYDROCHLORIDE [Concomitant]
  6. ENTECAVIR [Concomitant]
     Active Substance: ENTECAVIR
  7. THEOPHYLLINE [Concomitant]
     Active Substance: THEOPHYLLINE
  8. ACETAMINOPHEN\OXYCODONE HYDROCHLORIDE [Concomitant]
     Active Substance: ACETAMINOPHEN\OXYCODONE HYDROCHLORIDE
  9. ZOLPIDEM TARTRATE [Concomitant]
     Active Substance: ZOLPIDEM TARTRATE
  10. GLUTATHIONE [Concomitant]
     Active Substance: GLUTATHIONE
  11. DUPHALAC [Concomitant]
     Active Substance: LACTULOSE
  12. GLYCERIN [Concomitant]
     Active Substance: GLYCERIN
  13. VITAMIN B1 [Concomitant]
     Active Substance: THIAMINE HYDROCHLORIDE
  14. MAGNESIUM ISOGLYCYRRHIZINATE [Concomitant]
     Active Substance: MAGNESIUM ISOGLYCYRRHIZINATE
  15. ENEMIA GLYCERINI [Concomitant]
  16. DEXTROSE [Concomitant]
     Active Substance: DEXTROSE

REACTIONS (3)
  - Abdominal pain upper [Not Recovered/Not Resolved]
  - Death [Fatal]
  - Abdominal pain [Not Recovered/Not Resolved]

NARRATIVE: CASE EVENT DATE: 20210720
